FAERS Safety Report 12389616 (Version 8)
Quarter: 2017Q3

REPORT INFORMATION
  Report Type: Spontaneous
  Country: US (occurrence: US)
  Receive Date: 20160520
  Receipt Date: 20170816
  Transmission Date: 20171127
  Serious: Yes (Hospitalization, Other)
  Sender: FDA-Public Use
  Company Number: US-PFIZER INC-2015174028

PATIENT
  Age: 74 Year
  Sex: Male
  Weight: 56.7 kg

DRUGS (21)
  1. VFEND [Suspect]
     Active Substance: VORICONAZOLE
     Dosage: 200 MG, 2X/DAY (CUT IT IN HALF SO THAT I COULD MAKE ENOUGH TO HAVE 350 MG WITH THE 50 MG PILL)
     Dates: start: 2014
  2. FINASTERIDE. [Concomitant]
     Active Substance: FINASTERIDE
     Indication: PROSTATIC DISORDER
     Dosage: 5 MG, 1X/DAY
  3. VITAMIN D /00107901/ [Concomitant]
     Active Substance: ERGOCALCIFEROL
     Dosage: 2000 IU, 2X/DAY (1,000 IU TWO TWICE A DAY)
     Dates: start: 201603
  4. VFEND [Suspect]
     Active Substance: VORICONAZOLE
     Dosage: 350 MG, 2X/DAY
     Route: 048
  5. VFEND [Suspect]
     Active Substance: VORICONAZOLE
     Dosage: UNK
  6. VFEND [Suspect]
     Active Substance: VORICONAZOLE
     Dosage: 350 MG, 2X/DAY
     Route: 048
  7. METFORMIN [Concomitant]
     Active Substance: METFORMIN HYDROCHLORIDE
     Indication: HYPERGLYCAEMIA
     Dosage: 500 MG, 1X/DAY
  8. VFEND [Suspect]
     Active Substance: VORICONAZOLE
     Dosage: 350 MG, 2X/DAY
     Route: 048
  9. WARFARIN [Concomitant]
     Active Substance: WARFARIN
     Indication: ANTICOAGULANT THERAPY
     Dosage: 2.5 MG, 1X/DAY
     Dates: start: 201601
  10. VFEND [Suspect]
     Active Substance: VORICONAZOLE
     Dosage: 350 MG, 2X/DAY
     Route: 048
     Dates: end: 20161106
  11. METFORMIN [Concomitant]
     Active Substance: METFORMIN HYDROCHLORIDE
     Dosage: 1500 MG, DAILY  (TWO IN THE MORNING AND ONE AT NIGHT)
  12. AMPHOTERICIN B. [Concomitant]
     Active Substance: AMPHOTERICIN B
     Indication: ASPERGILLUS INFECTION
  13. NEURONTIN [Concomitant]
     Active Substance: GABAPENTIN
     Indication: DIABETIC NEUROPATHY
     Dosage: 600 MG, 3X/DAY
  14. VFEND [Suspect]
     Active Substance: VORICONAZOLE
     Indication: ASPERGILLUS INFECTION
     Dosage: 350 MG, 2X/DAY
     Route: 048
     Dates: start: 201501
  15. VFEND [Suspect]
     Active Substance: VORICONAZOLE
     Dosage: 350 MG, 2X/DAY (ONE AND ONE-HALF 200MG TABLET WITH 50MG TABLET BY MOUTH TWICE A DAY)
     Route: 048
     Dates: start: 201601
  16. VFEND [Suspect]
     Active Substance: VORICONAZOLE
     Dosage: 250 MG, 2X/DAY
     Dates: start: 2014
  17. VFEND [Suspect]
     Active Substance: VORICONAZOLE
     Dosage: 350 MG, 2X/DAY
     Route: 048
  18. FERROUS SULFATE. [Concomitant]
     Active Substance: FERROUS SULFATE
     Indication: HAEMOGLOBIN
     Dosage: 325 MG, 1X/DAY
     Dates: start: 201603
  19. METFORMIN [Concomitant]
     Active Substance: METFORMIN HYDROCHLORIDE
     Indication: DIABETES MELLITUS
     Dosage: 1000 MG, 2X/DAY
  20. CALCIUM [Concomitant]
     Active Substance: CALCIUM
     Dosage: 1100 MG, 2X/DAY (550MG TABLET TWO TWICE A DAY)
     Dates: start: 201603
  21. TERBINAFINE. [Concomitant]
     Active Substance: TERBINAFINE

REACTIONS (18)
  - Chills [Unknown]
  - Photosensitivity reaction [Unknown]
  - Pyrexia [Recovered/Resolved]
  - Drug ineffective [Unknown]
  - Foramen magnum syndrome [Unknown]
  - Upper limb fracture [Not Recovered/Not Resolved]
  - Hip fracture [Not Recovered/Not Resolved]
  - Haemoglobin decreased [Unknown]
  - Fall [Not Recovered/Not Resolved]
  - Blood potassium increased [Unknown]
  - Wrong technique in product usage process [Unknown]
  - Bacterial infection [Recovered/Resolved]
  - Heart rate increased [Unknown]
  - Squamous cell carcinoma of skin [Unknown]
  - Confusional state [Recovered/Resolved]
  - Ear pain [Recovering/Resolving]
  - Skin cancer [Not Recovered/Not Resolved]
  - Facial pain [Recovering/Resolving]

NARRATIVE: CASE EVENT DATE: 2016
